FAERS Safety Report 7926224-4 (Version None)
Quarter: 2011Q4

REPORT INFORMATION
  Report Type: 
  Country: None (occurrence: None)
  Receive Date: 20111118
  Receipt Date: 20111109
  Transmission Date: 20120403
  Serious: Yes (Other)
  Sender: FDA-Public Use
  Company Number: US-BIOGENIDEC-2011BI017581

PATIENT
  Age: 54 Year
  Sex: Female

DRUGS (9)
  1. LYTREN (ELECTROLYTE REPLACER) [Concomitant]
  2. TYSABRI [Suspect]
     Route: 042
     Dates: start: 20061227, end: 20070126
  3. DETROL [Concomitant]
  4. SEREVENT [Concomitant]
  5. FLONASE [Concomitant]
  6. TRAZODONE HCL [Concomitant]
  7. KLONOPIN [Concomitant]
  8. TYSABRI [Suspect]
     Indication: MULTIPLE SCLEROSIS
     Route: 042
     Dates: start: 20070716
  9. GABAPENTIN [Concomitant]

REACTIONS (2)
  - MULTIPLE SCLEROSIS RELAPSE [None]
  - BASAL CELL CARCINOMA [None]
